FAERS Safety Report 4498641-9 (Version None)
Quarter: 2004Q3

REPORT INFORMATION
  Report Type: 
  Country: None (occurrence: None)
  Receive Date: 20040927
  Receipt Date: 20040615
  Transmission Date: 20050211
  Serious: No
  Sender: FDA-Public Use
  Company Number: USA040670194

PATIENT
  Age: 19 Year
  Sex: Male
  Weight: 77 kg

DRUGS (1)
  1. STRATTERA [Suspect]
     Indication: ATTENTION DEFICIT/HYPERACTIVITY DISORDER
     Dosage: 18 MG AT BEDTIME
     Dates: start: 20040529

REACTIONS (6)
  - FEELING JITTERY [None]
  - IRRITABILITY [None]
  - LIBIDO DECREASED [None]
  - PSYCHOMOTOR HYPERACTIVITY [None]
  - SEXUAL DYSFUNCTION [None]
  - SOMNOLENCE [None]
